FAERS Safety Report 5315157-8 (Version None)
Quarter: 2007Q2

REPORT INFORMATION
  Report Type: 
  Country: None (occurrence: None)
  Receive Date: 20070427
  Receipt Date: 20070419
  Transmission Date: 20071010
  Serious: Yes (Death, Hospitalization, Other)
  Sender: FDA-Public Use
  Company Number: 167-C5013-07040176

PATIENT
  Age: 69 Year
  Sex: Female

DRUGS (6)
  1. CC-5013 (LENALIDOMIDE) (CAPSULES) [Suspect]
     Indication: MULTIPLE MYELOMA
     Dosage: DAILY, ORAL
     Route: 048
     Dates: start: 20070301
  2. DEXAMETHASONE TAB [Suspect]
     Indication: MULTIPLE MYELOMA
     Dosage: DAYS 1-4, 8-11
     Dates: start: 20070301
  3. CYCLOPHOSPHAMIDE [Suspect]
     Indication: MULTIPLE MYELOMA
     Dosage: DAY 1 AND DAY 8, ORAL
     Route: 048
     Dates: start: 20070301
  4. ALLOPURINOL [Concomitant]
  5. LANSOPRAZOLE [Concomitant]
  6. METOCLOPRAMIDE [Concomitant]

REACTIONS (12)
  - ARRHYTHMIA [None]
  - BLOOD CULTURE POSITIVE [None]
  - BLOOD PRESSURE DECREASED [None]
  - BLOOD PRESSURE INCREASED [None]
  - CONVULSION [None]
  - DEHYDRATION [None]
  - DEPRESSED LEVEL OF CONSCIOUSNESS [None]
  - GENERAL PHYSICAL HEALTH DETERIORATION [None]
  - MENINGITIS PNEUMOCOCCAL [None]
  - NORMOCHROMIC NORMOCYTIC ANAEMIA [None]
  - PNEUMOCOCCAL INFECTION [None]
  - SUPRAVENTRICULAR TACHYCARDIA [None]
